FAERS Safety Report 8266585-2 (Version None)
Quarter: 2012Q2

REPORT INFORMATION
  Report Type: 
  Country: None (occurrence: None)
  Receive Date: 20120406
  Receipt Date: 20120322
  Transmission Date: 20120825
  Serious: Yes (Hospitalization)
  Sender: FDA-Public Use
  Company Number: CN-BAXTER-2012BH005159

PATIENT
  Sex: Female
  Weight: 50 kg

DRUGS (1)
  1. LOW CALCIUM PERITONEAL DIALYSIS SOLUTION ( LACTATE- G1.5%) [Suspect]
     Indication: RENAL FAILURE
     Route: 033
     Dates: start: 20120220, end: 20120220

REACTIONS (4)
  - PRODUCT CONTAINER ISSUE [None]
  - ABDOMINAL PAIN [None]
  - CARDIOVASCULAR DISORDER [None]
  - ULTRAFILTRATION FAILURE [None]
